FAERS Safety Report 11062943 (Version 1)
Quarter: 2015Q2

REPORT INFORMATION
  Report Type: Spontaneous
  Country: BR (occurrence: BR)
  Receive Date: 20150424
  Receipt Date: 20150424
  Transmission Date: 20150821
  Serious: Yes (Other)
  Sender: FDA-Public Use
  Company Number: BR-BAYER-2014-162384

PATIENT
  Sex: Female

DRUGS (1)
  1. MIRENA [Suspect]
     Active Substance: LEVONORGESTREL
     Indication: CONTRACEPTION
     Dosage: 20 MCG/24HR, CONT
     Route: 015
     Dates: start: 20130702

REACTIONS (5)
  - Pregnancy with contraceptive device [Recovered/Resolved]
  - Amenorrhoea [Recovered/Resolved]
  - Device dislocation [Not Recovered/Not Resolved]
  - Drug ineffective [None]
  - Previous caesarean section [None]

NARRATIVE: CASE EVENT DATE: 20141101
